FAERS Safety Report 25214069 (Version 3)
Quarter: 2025Q2

REPORT INFORMATION
  Report Type: Spontaneous
  Country: US (occurrence: US)
  Receive Date: 20250418
  Receipt Date: 20250505
  Transmission Date: 20250716
  Serious: No
  Sender: PFIZER
  Company Number: US-PFIZER INC-PV202400067100

PATIENT
  Age: 40 Year
  Sex: Female
  Weight: 68.934 kg

DRUGS (1)
  1. BOSULIF [Suspect]
     Active Substance: BOSUTINIB MONOHYDRATE
     Indication: Chronic myeloid leukaemia
     Dosage: 300 MG, 1X/DAY (3 TABLET EVERY DAY)
     Route: 048

REACTIONS (1)
  - Platelet count decreased [Unknown]
